FAERS Safety Report 6609896-6 (Version None)
Quarter: 2010Q1

REPORT INFORMATION
  Report Type: 
  Country: None (occurrence: None)
  Receive Date: 20100224
  Receipt Date: 20100209
  Transmission Date: 20100710
  Serious: Yes (Other)
  Sender: FDA-Public Use
  Company Number: DSU-2010-00513

PATIENT
  Sex: Male

DRUGS (5)
  1. OLMESARTAN MEDOXOMIL AND HYDROCHLOROTHIZIDE [Suspect]
     Indication: DRUG USE FOR UNKNOWN INDICATION
     Dosage: PER ORAL
     Route: 048
     Dates: start: 20100101
  2. OLMETEC (OLMESARTAN MEDOXOMIL) (TABLET) (OLMESARTAN MEDOXOMIL) [Suspect]
     Indication: DRUG USE FOR UNKNOWN INDICATION
     Dosage: PER ORAL
     Route: 048
  3. NORVASC [Suspect]
     Indication: DRUG USE FOR UNKNOWN INDICATION
     Dosage: PER ORAL
     Route: 048
  4. HYDROCHLOROTHIAZIDE (HYDROCHLOROTHIAZIDE) (25 MILLIGRAM) (HYDROCHLOROT [Concomitant]
  5. BESILATE (BESILATE) [Concomitant]

REACTIONS (3)
  - EYE HAEMORRHAGE [None]
  - TREATMENT NONCOMPLIANCE [None]
  - VISUAL IMPAIRMENT [None]
